FAERS Safety Report 20866381 (Version 1)
Quarter: 2022Q2

REPORT INFORMATION
  Report Type: Spontaneous
  Country: US (occurrence: None)
  Receive Date: 20220523
  Receipt Date: 20220523
  Transmission Date: 20220721
  Serious: Yes (Death, Life-Threatening)
  Sender: FDA-Public Use
  Company Number: None

PATIENT
  Age: 59 Year
  Sex: Male
  Weight: 89.36 kg

DRUGS (10)
  1. PREVYMIS [Suspect]
     Active Substance: LETERMOVIR
     Dosage: FREQUENCY : DAILY;?
     Route: 048
  2. LEVAQUIN [Concomitant]
     Active Substance: LEVOFLOXACIN
  3. MYCAMINE [Concomitant]
     Active Substance: MICAFUNGIN SODIUM
  4. NOXAFIL [Concomitant]
     Active Substance: POSACONAZOLE
  5. PROTONIX [Concomitant]
     Active Substance: PANTOPRAZOLE SODIUM
  6. PROZAC [Concomitant]
     Active Substance: FLUOXETINE HYDROCHLORIDE
  7. SEROQUEL [Concomitant]
  8. URSODIOL [Concomitant]
  9. VANCOMYCIN [Concomitant]
     Active Substance: VANCOMYCIN
  10. ZOVIRAX [Concomitant]
     Active Substance: ACYCLOVIR

REACTIONS (1)
  - Death [None]
